FAERS Safety Report 16885812 (Version 1)
Quarter: 2019Q4

REPORT INFORMATION
  Report Type: Report from Study
  Country: US (occurrence: US)
  Receive Date: 20191004
  Receipt Date: 20191004
  Transmission Date: 20200122
  Serious: Yes (Other)
  Sender: FDA-Public Use
  Company Number: US-JNJFOC-20190705986

PATIENT
  Sex: Male

DRUGS (4)
  1. TERAZOSIN [Concomitant]
     Active Substance: TERAZOSIN HYDROCHLORIDE
  2. IMBRUVICA [Suspect]
     Active Substance: IBRUTINIB
     Indication: CHRONIC LYMPHOCYTIC LEUKAEMIA RECURRENT
     Dosage: 420 MG, QD
     Route: 048
     Dates: start: 20180511
  3. FINASTERIDE. [Concomitant]
     Active Substance: FINASTERIDE
  4. NORVASC [Concomitant]
     Active Substance: AMLODIPINE BESYLATE

REACTIONS (2)
  - Epistaxis [Recovered/Resolved]
  - Biopsy prostate [Recovered/Resolved]

NARRATIVE: CASE EVENT DATE: 2019
